FAERS Safety Report 6244046-X (Version None)
Quarter: 2009Q2

REPORT INFORMATION
  Report Type: 
  Country: None (occurrence: None)
  Receive Date: 20090625
  Receipt Date: 20080530
  Transmission Date: 20091009
  Serious: Yes (Other)
  Sender: FDA-Public Use
  Company Number: US-ASTRAZENECA-2006UW07028

PATIENT
  Age: 552 Month
  Sex: Female
  Weight: 92.5 kg

DRUGS (19)
  1. SEROQUEL [Suspect]
     Indication: ANXIETY
     Dosage: 25 MG TO 600 MG DAILY
     Route: 048
     Dates: start: 20040105
  2. SEROQUEL [Suspect]
     Indication: DEPRESSION
     Dosage: 25 MG TO 600 MG DAILY
     Route: 048
     Dates: start: 20040105
  3. SEROQUEL [Suspect]
     Indication: BIPOLAR DISORDER
     Dosage: 25 MG TO 600 MG DAILY
     Route: 048
     Dates: start: 20040105
  4. SEROQUEL [Suspect]
     Indication: SLEEP DISORDER
     Dosage: 25 MG TO 600 MG DAILY
     Route: 048
     Dates: start: 20040105
  5. SEROQUEL [Suspect]
     Dosage: 25 MG - 200 MG
     Route: 048
     Dates: start: 20040109, end: 20040125
  6. SEROQUEL [Suspect]
     Dosage: 25 MG - 200 MG
     Route: 048
     Dates: start: 20040109, end: 20040125
  7. SEROQUEL [Suspect]
     Dosage: 25 MG - 200 MG
     Route: 048
     Dates: start: 20040109, end: 20040125
  8. SEROQUEL [Suspect]
     Dosage: 25 MG - 200 MG
     Route: 048
     Dates: start: 20040109, end: 20040125
  9. SEROQUEL [Suspect]
     Route: 048
     Dates: start: 20050131, end: 20061106
  10. SEROQUEL [Suspect]
     Route: 048
     Dates: start: 20050131, end: 20061106
  11. SEROQUEL [Suspect]
     Route: 048
     Dates: start: 20050131, end: 20061106
  12. SEROQUEL [Suspect]
     Route: 048
     Dates: start: 20050131, end: 20061106
  13. ABILIFY [Concomitant]
     Dates: start: 20030827
  14. GEODON [Concomitant]
     Dates: start: 20040107, end: 20040901
  15. ZYPREXA/SYMBYAX [Concomitant]
     Dates: start: 20030401, end: 20040501
  16. ZOLOFT [Concomitant]
     Dates: start: 20030401
  17. TRAZODONE HCL [Concomitant]
     Dosage: 20 MG TO 160 MG DAILY
     Route: 048
     Dates: start: 20030324
  18. WELLBUTRIN [Concomitant]
     Route: 048
     Dates: start: 20030324
  19. LEXAPRO [Concomitant]
     Dates: start: 20030324

REACTIONS (7)
  - BLOOD CHOLESTEROL INCREASED [None]
  - BLOOD TRIGLYCERIDES INCREASED [None]
  - NEUROPATHY PERIPHERAL [None]
  - RETINOPATHY [None]
  - TYPE 1 DIABETES MELLITUS [None]
  - TYPE 2 DIABETES MELLITUS [None]
  - WEIGHT INCREASED [None]
